FAERS Safety Report 25565560 (Version 3)
Quarter: 2025Q3

REPORT INFORMATION
  Report Type: Spontaneous
  Country: GB (occurrence: GB)
  Receive Date: 20250716
  Receipt Date: 20250719
  Transmission Date: 20251021
  Serious: Yes (Other)
  Sender: AMGEN
  Company Number: GB-UCBSA-2025042316

PATIENT
  Age: 57 Year
  Sex: Female

DRUGS (1)
  1. EVENITY [Suspect]
     Active Substance: ROMOSOZUMAB-AQQG
     Indication: Osteoporosis
     Route: 065
     Dates: start: 20241202

REACTIONS (5)
  - Transient ischaemic attack [Unknown]
  - Dysarthria [Unknown]
  - Fatigue [Unknown]
  - Somnolence [Unknown]
  - Malaise [Unknown]

NARRATIVE: CASE EVENT DATE: 20250613
